FAERS Safety Report 12911084 (Version 10)
Quarter: 2017Q1

REPORT INFORMATION
  Report Type: Report from Study
  Country: US (occurrence: US)
  Receive Date: 20161104
  Receipt Date: 20170215
  Transmission Date: 20170428
  Serious: No
  Sender: FDA-Public Use
  Company Number: US-PFIZER INC-2016510695

PATIENT
  Age: 68 Year
  Sex: Female

DRUGS (2)
  1. IBRANCE [Suspect]
     Active Substance: PALBOCICLIB
     Indication: BREAST CANCER METASTATIC
     Dosage: 125 MG, ORAL, CYCLIC [ONCE DAILY, 21 DAYS IN A ROW, FOLLOWED BY 7 DAYS OFF EVERY 28 DAYS]
     Route: 048
     Dates: start: 20161029
  2. IBRANCE [Suspect]
     Active Substance: PALBOCICLIB
     Indication: BREAST CANCER

REACTIONS (14)
  - Feeling abnormal [Recovered/Resolved]
  - Fatigue [Not Recovered/Not Resolved]
  - White blood cell count decreased [Unknown]
  - Asthenia [Recovering/Resolving]
  - Condition aggravated [Unknown]
  - Oropharyngeal pain [Unknown]
  - Nausea [Unknown]
  - Diarrhoea [Unknown]
  - Hunger [Unknown]
  - Hot flush [Unknown]
  - Headache [Recovering/Resolving]
  - Cough [Unknown]
  - Night sweats [Unknown]
  - Full blood count decreased [Unknown]
